FAERS Safety Report 11740346 (Version 2)
Quarter: 2015Q4

REPORT INFORMATION
  Report Type: Spontaneous
  Country: US (occurrence: US)
  Receive Date: 20151110
  Receipt Date: 20151120
  Transmission Date: 20160304
  Serious: No
  Sender: FDA-Public Use
  Company Number: US-ELI_LILLY_AND_COMPANY-US201205000307

PATIENT
  Age: 65 Year
  Sex: Female

DRUGS (5)
  1. FORTEO [Suspect]
     Active Substance: TERIPARATIDE
     Dosage: 20 UG, QD
  2. SYNTHROID [Concomitant]
     Active Substance: LEVOTHYROXINE SODIUM
  3. FORTEO [Suspect]
     Active Substance: TERIPARATIDE
     Indication: OSTEOPOROSIS
     Dosage: 20 UG, QD
     Dates: start: 201204
  4. FORTEO [Suspect]
     Active Substance: TERIPARATIDE
     Dosage: 20 UG, QD
  5. FORTEO [Suspect]
     Active Substance: TERIPARATIDE
     Dosage: 20 UG, QD
     Dates: end: 201207

REACTIONS (15)
  - Vein disorder [Unknown]
  - Oropharyngeal blistering [Unknown]
  - Candida infection [Recovered/Resolved]
  - Dizziness [Unknown]
  - Hypertension [Not Recovered/Not Resolved]
  - Dry mouth [Unknown]
  - Injection site vesicles [Unknown]
  - Asthenia [Unknown]
  - Pharyngeal oedema [Unknown]
  - Candida infection [Unknown]
  - Drug hypersensitivity [Unknown]
  - Scratch [Unknown]
  - Blister [Not Recovered/Not Resolved]
  - Vision blurred [Unknown]
  - Injection site bruising [Unknown]

NARRATIVE: CASE EVENT DATE: 20120424
